FAERS Safety Report 7548610-7 (Version None)
Quarter: 2011Q2

REPORT INFORMATION
  Report Type: 
  Country: None (occurrence: None)
  Receive Date: 20110615
  Receipt Date: 20110603
  Transmission Date: 20111010
  Serious: Yes (Other)
  Sender: FDA-Public Use
  Company Number: US-AMGEN-USASP2011022509

PATIENT
  Age: 42 Year
  Sex: Female

DRUGS (2)
  1. ENBREL [Suspect]
     Indication: FIBROMYALGIA
  2. ENBREL [Suspect]
     Indication: ANKYLOSING SPONDYLITIS
     Dosage: 50 MG, QWK
     Dates: start: 20110331

REACTIONS (9)
  - PARAESTHESIA [None]
  - HEADACHE [None]
  - ARTHRITIS [None]
  - FATIGUE [None]
  - PAIN IN EXTREMITY [None]
  - SOMNOLENCE [None]
  - DRUG INEFFECTIVE [None]
  - HYPOAESTHESIA [None]
  - INJECTION SITE DISCOMFORT [None]
